FAERS Safety Report 5532244-X (Version None)
Quarter: 2007Q4

REPORT INFORMATION
  Report Type: 
  Country: None (occurrence: None)
  Receive Date: 20071129
  Receipt Date: 20071129
  Transmission Date: 20080405
  Serious: Yes (Hospitalization)
  Sender: FDA-Public Use
  Company Number: None

PATIENT
  Age: 75 Year
  Sex: Male
  Weight: 103 kg

DRUGS (1)
  1. PROVIGIL [Suspect]
     Indication: SOMNOLENCE
     Dosage: 200 MG 1 1/2 TABS DAILY PO
     Route: 048
     Dates: start: 20071113, end: 20071127

REACTIONS (5)
  - CONFUSIONAL STATE [None]
  - HYPERHIDROSIS [None]
  - HYPONATRAEMIA [None]
  - RESTLESSNESS [None]
  - SPEECH DISORDER [None]
